FAERS Safety Report 4376836-2 (Version None)
Quarter: 2004Q2

REPORT INFORMATION
  Report Type: 
  Country: None (occurrence: None)
  Receive Date: 20040609
  Receipt Date: 20040423
  Transmission Date: 20050107
  Serious: Yes (Hospitalization)
  Sender: FDA-Public Use
  Company Number: PHEH2004US02545

PATIENT
  Age: 77 Year
  Sex: Female
  Weight: 75.3 kg

DRUGS (13)
  1. GLEEVEC [Suspect]
     Indication: CHRONIC MYELOID LEUKAEMIA
     Dosage: 400 MG QD ORAL
     Route: 048
     Dates: start: 20010701, end: 20040201
  2. HYDROXYCARBAMIDE [Concomitant]
  3. ALLOPURINOL [Concomitant]
  4. MEGACE [Concomitant]
  5. CELEBREX [Concomitant]
  6. ASPIRIN [Concomitant]
  7. DURAGESIC [Concomitant]
  8. FOLATE SODIUM [Concomitant]
  9. NEURONTIN [Concomitant]
  10. IRON SULPHATE (NCH) (FERROUS SULFATE) [Concomitant]
  11. TYLENOL [Concomitant]
  12. COLACE [Concomitant]
  13. PROTONIX [Concomitant]

REACTIONS (7)
  - ABDOMINAL PAIN [None]
  - CHEST PAIN [None]
  - DEHYDRATION [None]
  - NAUSEA [None]
  - OEDEMA PERIPHERAL [None]
  - VOMITING [None]
  - WHITE BLOOD CELL COUNT DECREASED [None]
